FAERS Safety Report 24098379 (Version 1)
Quarter: 2024Q3

REPORT INFORMATION
  Report Type: Spontaneous
  Country: FR (occurrence: FR)
  Receive Date: 20240716
  Receipt Date: 20240716
  Transmission Date: 20241016
  Serious: Yes (Other)
  Sender: TEVA
  Company Number: None

PATIENT
  Age: 28 Year
  Sex: Male

DRUGS (1)
  1. TRAMADOL [Suspect]
     Active Substance: TRAMADOL\TRAMADOL HYDROCHLORIDE
     Indication: Product used for unknown indication
     Dosage: TRAMADOL (HYDROCHLORIDE) , AT LEAST 3000 MG/DAY
     Route: 065

REACTIONS (3)
  - Drug dependence [Recovering/Resolving]
  - Drug abuse [Not Recovered/Not Resolved]
  - Pharmaceutical nomadism [Recovered/Resolved]
